FAERS Safety Report 9337524 (Version 2)
Quarter: 2013Q3

REPORT INFORMATION
  Report Type: Spontaneous
  Country: US (occurrence: US)
  Receive Date: 20130607
  Receipt Date: 20130712
  Transmission Date: 20140515
  Serious: Yes (Other)
  Sender: FDA-Public Use
  Company Number: CHPA2013US009401

PATIENT
  Age: 71 Year
  Sex: Male

DRUGS (2)
  1. EXCEDRIN EXTRA STRENGTH [Suspect]
     Indication: HEADACHE
     Dosage: 2 TO 3, UNK
     Route: 048
  2. BUTALBITAL [Concomitant]
     Indication: HEADACHE
     Dosage: UNK, UNK

REACTIONS (3)
  - Prostatomegaly [Recovering/Resolving]
  - Abdominal discomfort [Recovered/Resolved]
  - Incorrect dose administered [Unknown]
